FAERS Safety Report 16725081 (Version 1)
Quarter: 2019Q3

REPORT INFORMATION
  Report Type: Spontaneous
  Country: US (occurrence: US)
  Receive Date: 20190704
  Receipt Date: 20190704
  Transmission Date: 20191005
  Serious: Yes (Life-Threatening, Hospitalization)
  Sender: FDA-Public Use
  Company Number: None

PATIENT
  Age: 58 Year
  Sex: Female

DRUGS (1)
  1. VANCOMYCIN [Suspect]
     Active Substance: VANCOMYCIN
     Indication: OSTEOMYELITIS
     Route: 042
     Dates: start: 20190426, end: 20190530

REACTIONS (12)
  - International normalised ratio abnormal [None]
  - Acute kidney injury [None]
  - Haemorrhage [None]
  - Urticaria [None]
  - Type IV hypersensitivity reaction [None]
  - Drug reaction with eosinophilia and systemic symptoms [None]
  - Multiple organ dysfunction syndrome [None]
  - Hepatic enzyme increased [None]
  - Thrombocytopenia [None]
  - Nephritis [None]
  - Pruritus [None]
  - Jaundice [None]

NARRATIVE: CASE EVENT DATE: 20190517
